FAERS Safety Report 17795267 (Version 3)
Quarter: 2020Q3

REPORT INFORMATION
  Report Type: Report from Study
  Country: GB (occurrence: GB)
  Receive Date: 20200515
  Receipt Date: 20200825
  Transmission Date: 20201102
  Serious: Yes (Life-Threatening, Hospitalization, Other)
  Sender: FDA-Public Use
  Company Number: GB-BRISTOL-MYERS SQUIBB COMPANY-BMS-2020-026651

PATIENT
  Age: 54 Year
  Sex: Male
  Weight: 81 kg

DRUGS (3)
  1. PLACEBO [Suspect]
     Active Substance: UNSPECIFIED INGREDIENT
     Indication: RENAL CELL CARCINOMA
     Dosage: 40 MILLIGRAM, QD
     Route: 048
     Dates: start: 20200219, end: 20200430
  2. IPILIMUMAB [Suspect]
     Active Substance: IPILIMUMAB
     Indication: RENAL CELL CARCINOMA
     Dosage: 1 MILLIGRAM/KILOGRAM, Q3WK, 4 DOSES
     Route: 042
     Dates: start: 20200219, end: 20200430
  3. NIVOLUMAB [Suspect]
     Active Substance: NIVOLUMAB
     Indication: RENAL CELL CARCINOMA
     Dosage: 3 MILLIGRAM/KILOGRAM, Q3WK 4 DOSES
     Route: 042
     Dates: start: 20200219, end: 20200430

REACTIONS (6)
  - Renal failure [Not Recovered/Not Resolved]
  - Transaminases increased [Recovered/Resolved]
  - Systemic inflammatory response syndrome [Recovered/Resolved]
  - Photophobia [Recovered/Resolved]
  - Pyrexia [Recovered/Resolved]
  - Haemophagocytic lymphohistiocytosis [Recovered/Resolved]

NARRATIVE: CASE EVENT DATE: 20200318
